FAERS Safety Report 8093458-0 (Version None)
Quarter: 2012Q1

REPORT INFORMATION
  Report Type: 
  Country: None (occurrence: None)
  Receive Date: 20120129
  Receipt Date: 20110901
  Transmission Date: 20120608
  Serious: No
  Sender: FDA-Public Use
  Company Number: US-ABBOTT-11P-163-0851155-00

PATIENT
  Sex: Female
  Weight: 63.56 kg

DRUGS (2)
  1. EFFEXOR [Concomitant]
     Indication: DEPRESSION
  2. HUMIRA [Suspect]
     Indication: CROHN'S DISEASE
     Dates: start: 20110501

REACTIONS (1)
  - INTESTINAL ULCER [None]
